FAERS Safety Report 6146702-0 (Version None)
Quarter: 2009Q2

REPORT INFORMATION
  Report Type: 
  Country: None (occurrence: None)
  Receive Date: 20090407
  Receipt Date: 20090330
  Transmission Date: 20091009
  Serious: Yes (Hospitalization)
  Sender: FDA-Public Use
  Company Number: PHHY2009ES11706

PATIENT
  Age: 82 Year
  Sex: Female

DRUGS (6)
  1. ZOMETA [Suspect]
     Indication: METASTASES TO BONE
     Dosage: 4 MG, QMO
     Route: 042
     Dates: start: 20071001, end: 20080321
  2. LOSARTAN POTASSIUM [Interacting]
     Dosage: 50 MG, UNK
     Route: 048
     Dates: start: 20080201, end: 20080321
  3. TROMALYT [Interacting]
     Indication: ATRIAL FIBRILLATION
     Dosage: 150 MG/DAY
     Route: 048
     Dates: start: 20080201, end: 20080321
  4. SEGURIL [Interacting]
     Indication: HYPERTENSION
     Dosage: 60 MG/DAY
     Route: 048
     Dates: start: 20080201, end: 20080321
  5. AMIODARONE HCL [Concomitant]
  6. ATROVENT [Concomitant]

REACTIONS (4)
  - ATRIAL FIBRILLATION [None]
  - DRUG INTERACTION [None]
  - HYPERTENSION [None]
  - RENAL FAILURE ACUTE [None]
